FAERS Safety Report 6202449-3 (Version None)
Quarter: 2009Q2

REPORT INFORMATION
  Report Type: 
  Country: None (occurrence: None)
  Receive Date: 20090520
  Receipt Date: 20090508
  Transmission Date: 20091009
  Serious: Yes (Hospitalization)
  Sender: FDA-Public Use
  Company Number: 230106J08CAN

PATIENT
  Sex: Female

DRUGS (3)
  1. REBIF [Suspect]
     Indication: MULTIPLE SCLEROSIS
     Dosage: 44 MCG, 3 IN 1 WEEKS
     Route: 058
     Dates: start: 20010302, end: 20080127
  2. REBIF [Suspect]
     Indication: MULTIPLE SCLEROSIS
     Dosage: 44 MCG, 3 IN 1 WEEKS
     Route: 058
     Dates: start: 20080101
  3. CLINDAMYCIN  /00166001/ [Concomitant]

REACTIONS (6)
  - BLISTER [None]
  - LOWER EXTREMITY MASS [None]
  - MUSCLE MASS [None]
  - MUSCLE SPASMS [None]
  - SCAR [None]
  - URINARY TRACT INFECTION [None]
